FAERS Safety Report 6010864-6 (Version None)
Quarter: 2008Q4

REPORT INFORMATION
  Report Type: 
  Country: None (occurrence: None)
  Receive Date: 20081218
  Receipt Date: 20081208
  Transmission Date: 20090506
  Serious: Yes (Other)
  Sender: FDA-Public Use
  Company Number: US-ABBOTT-08P-163-0492005-00

PATIENT
  Sex: Female
  Weight: 109.41 kg

DRUGS (6)
  1. ZEMPLAR [Suspect]
     Indication: HYPERPARATHYROIDISM
     Route: 048
     Dates: start: 20081201
  2. CARVEDILOL [Concomitant]
     Indication: CARDIAC DISORDER
     Route: 048
  3. DIOVAN HCT [Concomitant]
     Indication: HYPERTENSION
     Route: 048
  4. SITAGLIPTIN PHOSPHATE [Concomitant]
     Indication: DIABETES MELLITUS
  5. FUROSEMIDE [Concomitant]
     Indication: DIURETIC THERAPY
     Route: 048
  6. ERGOCALCIFEROL [Concomitant]
     Indication: HYPERPARATHYROIDISM
     Route: 048

REACTIONS (2)
  - BACK PAIN [None]
  - RENAL MASS [None]
